FAERS Safety Report 8919264 (Version 3)
Quarter: 2014Q2

REPORT INFORMATION
  Report Type: Spontaneous
  Country: US (occurrence: US)
  Receive Date: 20121121
  Receipt Date: 20140606
  Transmission Date: 20141212
  Serious: Yes (Other)
  Sender: FDA-Public Use
  Company Number: US-JNJFOC-20121106120

PATIENT
  Age: 41 Year
  Sex: Female
  Weight: 70.31 kg

DRUGS (13)
  1. SIMPONI [Suspect]
     Indication: ANKYLOSING SPONDYLITIS
     Dosage: PATIENT WAS ON GOLIMUMAB FOR 18 MONTHS
     Route: 058
     Dates: start: 201101, end: 201208
  2. SULFASALAZINE [Suspect]
     Indication: ANKYLOSING SPONDYLITIS
     Route: 048
     Dates: start: 201111, end: 201208
  3. FIBERCON [Concomitant]
     Indication: CONSTIPATION
     Dosage: 6 TABLETS PER DAY
     Route: 065
     Dates: start: 2005
  4. MULTIVITAMINS [Concomitant]
     Route: 065
  5. ALBUTEROL [Concomitant]
     Route: 065
  6. CALCIUM [Concomitant]
     Route: 065
  7. FEXOFENADINE [Concomitant]
     Route: 065
  8. FLUTICASONE PROPIONATE [Concomitant]
     Dosage: 100/50 NICROGRAMS
     Route: 065
  9. JOLESSA [Concomitant]
     Indication: POLYCYSTIC OVARIES
     Dosage: LEVONORGESTREL/ETHINYL ESTRADIOL 0.15/0.03 ONE PILL DAILY
     Route: 048
  10. OMEPRAZOLE [Concomitant]
     Route: 065
  11. SIMVASTATIN [Concomitant]
     Route: 065
  12. FLUTICASONE [Concomitant]
     Route: 065
  13. IBUPROFEN [Concomitant]
     Indication: ANKYLOSING SPONDYLITIS
     Dosage: 0 TO 3 PER DAY
     Route: 065
     Dates: start: 1999

REACTIONS (7)
  - Pulmonary sarcoidosis [Recovered/Resolved]
  - Bronchitis [Unknown]
  - Uveitis [Unknown]
  - Anaemia [Recovered/Resolved]
  - Lung infection [Recovered/Resolved]
  - Arthritis [Unknown]
  - Drug effect incomplete [Unknown]
